FAERS Safety Report 6119538-4 (Version None)
Quarter: 2009Q1

REPORT INFORMATION
  Report Type: 
  Country: None (occurrence: None)
  Receive Date: 20090316
  Receipt Date: 20090306
  Transmission Date: 20090719
  Serious: Yes (Hospitalization)
  Sender: FDA-Public Use
  Company Number: A0773279A

PATIENT
  Sex: Female
  Weight: 113.2 kg

DRUGS (1)
  1. AVANDIA [Suspect]
     Indication: DIABETES MELLITUS
     Dosage: 4MG PER DAY
     Route: 048
     Dates: start: 19990101, end: 20040919

REACTIONS (9)
  - ANXIETY [None]
  - BLOOD TRIGLYCERIDES INCREASED [None]
  - CARDIAC FAILURE CONGESTIVE [None]
  - DEPRESSION [None]
  - RENAL DISORDER [None]
  - RENAL FAILURE [None]
  - RENAL INJURY [None]
  - THROMBOSIS [None]
  - WEIGHT INCREASED [None]
